FAERS Safety Report 9785522 (Version 2)
Quarter: 2013Q4

REPORT INFORMATION
  Report Type: Spontaneous
  Country: US (occurrence: US)
  Receive Date: 20131227
  Receipt Date: 20131227
  Transmission Date: 20140711
  Serious: Yes (Other)
  Sender: FDA-Public Use
  Company Number: US-ASTELLAS-2013US011077

PATIENT
  Age: 76 Year
  Sex: Male

DRUGS (1)
  1. LEXISCAN [Suspect]
     Indication: CARDIAC STRESS TEST
     Dosage: UNK
     Route: 042
     Dates: start: 20131015, end: 20131015

REACTIONS (7)
  - Cardiogenic shock [Unknown]
  - Acute coronary syndrome [Unknown]
  - Acute myocardial infarction [Unknown]
  - Ventricular fibrillation [Unknown]
  - Sinus arrest [Recovered/Resolved]
  - Erythema [Unknown]
  - Flushing [Unknown]
